FAERS Safety Report 5493395-1 (Version None)
Quarter: 2007Q4

REPORT INFORMATION
  Report Type: 
  Country: None (occurrence: None)
  Receive Date: 20071022
  Receipt Date: 20071022
  Transmission Date: 20080405
  Serious: No
  Sender: FDA-Public Use
  Company Number: None

PATIENT
  Age: 51 Year
  Sex: Male

DRUGS (6)
  1. MODAFINIL [Suspect]
     Dates: start: 20060401, end: 20060415
  2. LANSOPRAZOLE [Suspect]
     Dates: start: 20060307, end: 20060328
  3. TYLENOL [Concomitant]
  4. SOLU-MEDROL [Concomitant]
  5. PREDNISONE [Concomitant]
  6. ALPRAZOLAM [Concomitant]

REACTIONS (4)
  - HAEMANGIOMA [None]
  - HEPATIC MASS [None]
  - LIVER INJURY [None]
  - RENAL CYST [None]
